FAERS Safety Report 10757740 (Version 1)
Quarter: 2015Q1

REPORT INFORMATION
  Report Type: Spontaneous
  Country: US (occurrence: None)
  Receive Date: 20150202
  Receipt Date: 20150202
  Transmission Date: 20150721
  Serious: Yes (Other)
  Sender: FDA-Public Use
  Company Number: None

PATIENT
  Age: 53 Year
  Sex: Female
  Weight: 83.92 kg

DRUGS (5)
  1. LYRICA [Concomitant]
     Active Substance: PREGABALIN
  2. NATURE-THROID [Concomitant]
     Active Substance: THYROID, PORCINE
  3. PROMETRIUM [Concomitant]
     Active Substance: PROGESTERONE
  4. NIACIN ER [Suspect]
     Active Substance: NIACIN
     Indication: HYPERLIPIDAEMIA
     Route: 048
     Dates: start: 20130529, end: 20131010
  5. FELODIPINE. [Concomitant]
     Active Substance: FELODIPINE

REACTIONS (3)
  - Syncope [None]
  - Fall [None]
  - Joint injury [None]

NARRATIVE: CASE EVENT DATE: 20131007
